FAERS Safety Report 9318628 (Version 2)
Quarter: 2013Q3

REPORT INFORMATION
  Report Type: Spontaneous
  Country: US (occurrence: US)
  Receive Date: 20130530
  Receipt Date: 20130802
  Transmission Date: 20140515
  Serious: Yes (Hospitalization, Other)
  Sender: FDA-Public Use
  Company Number: US-ELI_LILLY_AND_COMPANY-US201305006673

PATIENT
  Sex: Female
  Weight: 121.9 kg

DRUGS (10)
  1. HUMALOG LISPRO [Suspect]
     Indication: BLOOD GLUCOSE INCREASED
     Dosage: 78 U, BID
     Dates: start: 201205
  2. HUMALOG LISPRO [Suspect]
     Dosage: 98 U, EACH EVENING
     Route: 058
     Dates: start: 201205
  3. HUMALOG LISPRO [Suspect]
     Dosage: 92 U, BID
     Route: 058
     Dates: start: 201210
  4. HUMALOG LISPRO [Suspect]
     Dosage: 110 U, EACH EVENING
     Dates: start: 201210
  5. LEVEMIR [Concomitant]
     Dosage: 182 U, EACH EVENING
  6. METFORMIN [Concomitant]
     Dosage: 1000 DF, BID
  7. MULTAQ [Concomitant]
     Dosage: 400 DF, QD
  8. METOPROLOL TARTRATE [Concomitant]
     Dosage: 100 DF, QD
  9. OMEPRAZOLE [Concomitant]
     Dosage: 20 MG, QD
  10. PRADAXA [Concomitant]
     Dosage: 300 MG, QD

REACTIONS (2)
  - Atrial fibrillation [Recovered/Resolved]
  - Blood glucose increased [Unknown]
